FAERS Safety Report 8813977 (Version 1)
Quarter: 2012Q4

REPORT INFORMATION
  Report Type: 
  Country: US (occurrence: US)
  Receive Date: 20120928
  Receipt Date: 20120928
  Transmission Date: 20130627
  Serious: Yes (Other)
  Sender: FDA-Public Use
  Company Number: US-ELI_LILLY_AND_COMPANY-US201209006291

PATIENT
  Sex: Male

DRUGS (3)
  1. HUMALOG LISPRO [Suspect]
     Indication: TYPE 2 DIABETES MELLITUS
     Dosage: 8 u, tid
  2. HUMALOG LISPRO [Suspect]
     Dosage: 8 u, tid
  3. LANTUS [Concomitant]

REACTIONS (1)
  - Neoplasm [Not Recovered/Not Resolved]
